FAERS Safety Report 15375074 (Version 1)
Quarter: 2018Q3

REPORT INFORMATION
  Report Type: Report from Study
  Country: IT (occurrence: IT)
  Receive Date: 20180912
  Receipt Date: 20180912
  Transmission Date: 20181010
  Serious: Yes (Other)
  Sender: FDA-Public Use
  Company Number: IT-PFIZER INC-2018365479

PATIENT
  Age: 75 Year
  Sex: Male
  Weight: 60 kg

DRUGS (4)
  1. MABTHERA [Concomitant]
     Active Substance: RITUXIMAB
     Indication: NON-HODGKIN^S LYMPHOMA
     Dosage: 1 DF, UNK
     Route: 058
     Dates: start: 20180710, end: 20180710
  2. ENDOXAN?BAXTER [Suspect]
     Active Substance: CYCLOPHOSPHAMIDE
     Indication: NON-HODGKIN^S LYMPHOMA
     Dosage: 1252 MG, CYCLIC
     Route: 042
     Dates: start: 20180710, end: 20180710
  3. VINCRISTINA TEVA [Suspect]
     Active Substance: VINCRISTINE
     Indication: NON-HODGKIN^S LYMPHOMA
     Dosage: 2 MG, CYCLIC
     Route: 040
     Dates: start: 20180710, end: 20180710
  4. ADRIBLASTINA [Suspect]
     Active Substance: DOXORUBICIN HYDROCHLORIDE
     Indication: NON-HODGKIN^S LYMPHOMA
     Dosage: 83.5 MG, CYCLIC
     Route: 042
     Dates: start: 20180710, end: 20180710

REACTIONS (2)
  - Administration site extravasation [Recovering/Resolving]
  - Eschar [Recovering/Resolving]

NARRATIVE: CASE EVENT DATE: 20180710
